FAERS Safety Report 12267967 (Version 5)
Quarter: 2016Q2

REPORT INFORMATION
  Report Type: Spontaneous
  Country: US (occurrence: US)
  Receive Date: 20160414
  Receipt Date: 20160524
  Transmission Date: 20160815
  Serious: Yes (Other)
  Sender: FDA-Public Use
  Company Number: US-009507513-1604USA001946

PATIENT
  Age: 48 Year
  Sex: Female
  Weight: 91.4 kg

DRUGS (7)
  1. DOXORUBICIN [Concomitant]
     Active Substance: DOXORUBICIN
     Indication: NEOPLASM MALIGNANT
     Dosage: 126 MG, QD
     Route: 042
     Dates: start: 20160328, end: 20160328
  2. DEXAMETHASONE. [Concomitant]
     Active Substance: DEXAMETHASONE
     Dosage: 4 MG, QD
     Route: 042
     Dates: start: 20160328, end: 20160328
  3. EMEND [Suspect]
     Active Substance: APREPITANT
     Dosage: 150 MG, DOSAGE FORM: LYOPHILIZED POWDER
     Route: 042
     Dates: start: 20160328, end: 20160328
  4. EMEND [Suspect]
     Active Substance: APREPITANT
     Dosage: 150 MG, UNK
     Route: 042
     Dates: start: 20160328, end: 20160328
  5. CYTOXAN [Concomitant]
     Active Substance: CYCLOPHOSPHAMIDE
     Indication: NEOPLASM MALIGNANT
     Dosage: UNK
     Route: 042
     Dates: start: 20160328, end: 20160328
  6. ALOXI [Concomitant]
     Active Substance: PALONOSETRON HYDROCHLORIDE
     Indication: PROPHYLAXIS OF NAUSEA AND VOMITING
     Dosage: 0.25 MG, QD
     Route: 042
     Dates: start: 20160328, end: 20160328
  7. EMEND [Suspect]
     Active Substance: APREPITANT
     Indication: PROPHYLAXIS OF NAUSEA AND VOMITING
     Dosage: 150 MG, UNK
     Route: 042
     Dates: start: 20160217, end: 20160217

REACTIONS (9)
  - Eye movement disorder [Recovered/Resolved]
  - Unresponsive to stimuli [Recovered/Resolved]
  - Depressed level of consciousness [Recovered/Resolved]
  - Headache [Recovered/Resolved]
  - Somnolence [Recovered/Resolved]
  - Dizziness [Recovered/Resolved]
  - Memory impairment [Unknown]
  - Fatigue [Unknown]
  - Disorientation [Recovered/Resolved]

NARRATIVE: CASE EVENT DATE: 20160328
